FAERS Safety Report 5450953-8 (Version None)
Quarter: 2007Q3

REPORT INFORMATION
  Report Type: 
  Country: None (occurrence: None)
  Receive Date: 20070911
  Receipt Date: 20070830
  Transmission Date: 20080115
  Serious: Yes (Life-Threatening, Hospitalization)
  Sender: FDA-Public Use
  Company Number: MPS1-10745

PATIENT
  Age: 7 Year
  Sex: Female

DRUGS (1)
  1. ALDURAZYME [Suspect]
     Indication: GLYCOGEN STORAGE DISEASE TYPE II
     Dosage: MG/KG 1XW  IV
     Route: 042
     Dates: start: 20051105

REACTIONS (2)
  - ASCITES [None]
  - ORGAN FAILURE [None]
